FAERS Safety Report 9586383 (Version 1)
Quarter: 2013Q4

REPORT INFORMATION
  Report Type: Spontaneous
  Country: GR (occurrence: GR)
  Receive Date: 20131003
  Receipt Date: 20131003
  Transmission Date: 20140711
  Serious: Yes (Hospitalization, Other)
  Sender: FDA-Public Use
  Company Number: PHHY2013GR106282

PATIENT
  Age: 42 Year
  Sex: Female

DRUGS (39)
  1. OXCARBAZEPINE [Suspect]
     Dosage: UNK
  2. OXCARBAZEPINE [Suspect]
     Dosage: 1200 MG, UNK
  3. CLOZAPINE [Suspect]
     Dosage: 300 MG, UNK
  4. CLOMIPRAMINE [Suspect]
     Dosage: UNK
  5. VALPROIC ACID [Suspect]
  6. MAPROTILINE [Suspect]
  7. PAROXETINE [Suspect]
     Dosage: UNK UKN, UNK
  8. VENLAFAXINE [Suspect]
  9. PROPRANOLOL [Suspect]
     Dosage: 20 DF, UNK
  10. QUETIAPINE [Suspect]
     Dosage: UNK 600 TO 800 MG FOR 2 MONTHS
  11. LORAZEPAM [Suspect]
     Dosage: UNK UKN, UNK
  12. RISPERIDONE [Suspect]
     Dosage: UNK 2 TO 4 MG FOR SHORT PERIODS
  13. ZIPRASIDONE [Suspect]
  14. AMITRIPTYLINE, PERPHENAZINE [Suspect]
     Dosage: UNK
  15. ESCITALOPRAM [Suspect]
     Dosage: UNK
  16. FLUOXETINE [Suspect]
     Dosage: UNK
  17. FLUOXETINE [Suspect]
     Dosage: 40 MG, UPTO
  18. GABAPENTIN [Suspect]
     Dosage: UNK
  19. PREGABALIN [Suspect]
     Dosage: UNK UKN, UNK
  20. PREGABALIN [Suspect]
     Dosage: 225 MG, UPTO
  21. PREGABALIN [Suspect]
     Dosage: 300 MG, UNK
  22. AMISULPRIDE [Suspect]
     Dosage: 100 MG, UNK
  23. SERTRALINE [Suspect]
     Dosage: 150 MG, UNK
  24. SERTRALINE [Suspect]
     Dosage: 300 MG, UNK
  25. MIRTAZAPINE [Suspect]
     Dosage: UNK
  26. TOPIRAMATE [Suspect]
     Dosage: 200 MG, UNK
  27. ALPRAZOLAM [Suspect]
  28. HALOPERIDOL [Suspect]
     Dosage: UNK
  29. DIAZEPAM [Suspect]
     Dosage: UNK
  30. THIORIDAZINE [Suspect]
     Dosage: UNK
  31. TRIFLUOPERAZINE [Suspect]
     Dosage: UNK UKN, UNK
  32. NEFAZODONE [Suspect]
     Dosage: UNK
  33. FLUVOXAMINE [Suspect]
     Dosage: UNK
  34. OLANZAPINE [Suspect]
     Dosage: UNK
  35. LEVOMEPROMAZINE [Suspect]
     Dosage: UNK
     Route: 042
  36. DULOXETINE [Suspect]
     Dosage: UNK
  37. ZUCLOPENTHIXOL [Suspect]
     Dosage: UNK
  38. BIPERIDEN [Suspect]
     Dosage: UNK
  39. CLORAZEPATE [Suspect]
     Dosage: UNK

REACTIONS (13)
  - Obsessive-compulsive disorder [Recovering/Resolving]
  - Obsessive thoughts [Recovering/Resolving]
  - Depression [Recovering/Resolving]
  - Suicide attempt [Recovering/Resolving]
  - Suicidal ideation [Recovering/Resolving]
  - Self-injurious ideation [Recovering/Resolving]
  - Hallucination, auditory [Recovering/Resolving]
  - Persecutory delusion [Recovering/Resolving]
  - Anxiety [Recovering/Resolving]
  - Confusional state [Recovering/Resolving]
  - Fear [Recovering/Resolving]
  - Aggression [Recovering/Resolving]
  - Grand mal convulsion [Recovering/Resolving]
